FAERS Safety Report 6775069-X (Version None)
Quarter: 2010Q2

REPORT INFORMATION
  Report Type: 
  Country: None (occurrence: None)
  Receive Date: 20100617
  Receipt Date: 20100604
  Transmission Date: 20101027
  Serious: Yes (Other)
  Sender: FDA-Public Use
  Company Number: B0656961A

PATIENT
  Sex: Male

DRUGS (2)
  1. LAMIVUDINE-HBV [Suspect]
  2. ZIDOVUDINE [Suspect]
     Indication: HIV INFECTION
     Route: 065

REACTIONS (4)
  - ANAEMIA NEONATAL [None]
  - DRUG EXPOSURE DURING PREGNANCY [None]
  - DRUG RESISTANCE [None]
  - NEONATAL DISORDER [None]
